FAERS Safety Report 26216768 (Version 1)
Quarter: 2025Q4

REPORT INFORMATION
  Report Type: Spontaneous
  Country: CN (occurrence: CN)
  Receive Date: 20251231
  Receipt Date: 20251231
  Transmission Date: 20260118
  Serious: Yes (Other)
  Sender: ACCORD
  Company Number: None

PATIENT
  Age: 51 Year
  Sex: Female
  Weight: 63 kg

DRUGS (6)
  1. TRASTUZUMAB [Suspect]
     Active Substance: TRASTUZUMAB
     Indication: Invasive breast carcinoma
     Dosage: 378 MILLIGRAM, QD, IV DRIP, STRENGTH: 150 MG
     Route: 042
     Dates: start: 20251124, end: 20251124
  2. PERTUZUMAB [Suspect]
     Active Substance: PERTUZUMAB
     Indication: Invasive breast carcinoma
     Dosage: 420 MILLIGRAM, QD, IV DRIP
     Route: 042
     Dates: start: 20251124, end: 20251124
  3. PARAPLATIN [Suspect]
     Active Substance: CARBOPLATIN
     Indication: Invasive breast carcinoma
     Dosage: 500 MILLIGRAM, QD, IV DRIP
     Route: 042
     Dates: start: 20251128, end: 20251128
  4. ERIBULIN [Suspect]
     Active Substance: ERIBULIN
     Indication: Invasive breast carcinoma
     Dosage: 2 MILLIGRAM, QD, IV DRIP
     Dates: start: 20251125, end: 20251125
  5. GLUCUROLACTONE [Concomitant]
     Active Substance: GLUCUROLACTONE
     Indication: Liver disorder
     Dosage: 0.2 GRAM, TID
     Route: 048
     Dates: start: 20251125, end: 20251208
  6. ERIBULIN [Suspect]
     Active Substance: ERIBULIN
     Indication: Invasive breast carcinoma
     Dosage: 2 MILLIGRAM, QD, IV DRIP
     Route: 042
     Dates: start: 20251202, end: 20251202

REACTIONS (5)
  - White blood cell count decreased [Recovering/Resolving]
  - Neutrophil count decreased [Recovering/Resolving]
  - Alanine aminotransferase increased [Recovering/Resolving]
  - Gamma-glutamyltransferase increased [Recovering/Resolving]
  - Aspartate aminotransferase increased [Recovering/Resolving]

NARRATIVE: CASE EVENT DATE: 20251203
